FAERS Safety Report 7683549-8 (Version None)
Quarter: 2011Q3

REPORT INFORMATION
  Report Type: 
  Country: None (occurrence: None)
  Receive Date: 20110815
  Receipt Date: 20110801
  Transmission Date: 20111222
  Serious: Yes (Other)
  Sender: FDA-Public Use
  Company Number: US-TYCO HEALTHCARE/MALLINCKRODT-T201101499

PATIENT
  Age: 45 Year
  Sex: Male

DRUGS (2)
  1. MORPHINE [Suspect]
     Dosage: 60 MG, TID
  2. HYDROMORPHONE HCL [Suspect]
     Dosage: 8 MG, QID, AS NEEDED

REACTIONS (2)
  - SECONDARY HYPOGONADISM [None]
  - OSTEOPOROSIS [None]
